FAERS Safety Report 4942834-0 (Version None)
Quarter: 2006Q1

REPORT INFORMATION
  Report Type: 
  Country: None (occurrence: None)
  Receive Date: 20060309
  Receipt Date: 20060302
  Transmission Date: 20060701
  Serious: Yes (Hospitalization)
  Sender: FDA-Public Use
  Company Number: 200600884

PATIENT
  Age: 65 Year
  Sex: Male

DRUGS (7)
  1. ALESION (EPINASTINE) [Suspect]
     Indication: RASH PRURITIC
     Dosage: 60 MG ONCE PO
     Route: 048
     Dates: start: 20051125, end: 20051224
  2. STARSIS [Concomitant]
  3. GLUCOBAY [Concomitant]
  4. HALCION [Concomitant]
  5. ADALAT [Concomitant]
  6. BASEN [Concomitant]
  7. ZESTRIL [Concomitant]

REACTIONS (3)
  - HEPATIC FUNCTION ABNORMAL [None]
  - INCORRECT DOSE ADMINISTERED [None]
  - JAUNDICE [None]
